FAERS Safety Report 10481210 (Version 2)
Quarter: 2015Q1

REPORT INFORMATION
  Report Type: Spontaneous
  Country: US (occurrence: US)
  Receive Date: 20140929
  Receipt Date: 20150224
  Transmission Date: 20150720
  Serious: Yes (Other)
  Sender: FDA-Public Use
  Company Number: US-PFIZER INC-2014266004

PATIENT
  Age: 69 Year
  Sex: Female
  Weight: 69.84 kg

DRUGS (12)
  1. DOMPERIDONE [Concomitant]
     Active Substance: DOMPERIDONE
     Dosage: 20 MG (1 CAPSULE 30 MIN. BEFORE MEALS + AT BEDTIME), UNK
  2. REVATIO [Suspect]
     Active Substance: SILDENAFIL CITRATE
     Dosage: 20 MG 3 TABLETS (60 MG),1 XDAY
     Route: 048
  3. EFFEXOR [Concomitant]
     Active Substance: VENLAFAXINE HYDROCHLORIDE
     Dosage: 25 MG, 1X/DAY
  4. OMEPRAZOLE/SODIUM BICARBONATE [Concomitant]
     Dosage: 40-1 (1 CAP 30 MIN. BEFORE BREAKFAST + DINNER)
  5. ZEGERID [Concomitant]
     Active Substance: OMEPRAZOLE\SODIUM BICARBONATE
  6. FUROSEMIDE. [Concomitant]
     Active Substance: FUROSEMIDE
     Dosage: 20 MG, 1X/DAY
  7. REVATIO [Suspect]
     Active Substance: SILDENAFIL CITRATE
     Dosage: 20 MG, 1X/DAY
     Route: 048
  8. ATENOLOL. [Concomitant]
     Active Substance: ATENOLOL
     Indication: HYPERTENSION
     Dosage: 25 MG, 1X/DAY(AT THE NIGHT TIME)
  9. LASIX [Concomitant]
     Active Substance: FUROSEMIDE
  10. HYDROXYZINE HCL [Concomitant]
     Active Substance: HYDROXYZINE HYDROCHLORIDE
  11. REVATIO [Suspect]
     Active Substance: SILDENAFIL CITRATE
     Indication: PULMONARY HYPERTENSION
     Dosage: 20 MG, 3X/DAY
     Route: 048
     Dates: start: 20080121
  12. LORAZEPAM. [Concomitant]
     Active Substance: LORAZEPAM
     Dosage: 1 MG 2 (AT BEDTIME)

REACTIONS (10)
  - Hiatus hernia [Unknown]
  - Pneumonia [Recovered/Resolved]
  - Mastocytosis [Unknown]
  - Impaired gastric emptying [Unknown]
  - Hiatus hernia [Unknown]
  - Colitis microscopic [Unknown]
  - Arthropathy [Unknown]
  - Cataract [Unknown]
  - Dyspnoea [Not Recovered/Not Resolved]
  - Gallbladder disorder [Unknown]

NARRATIVE: CASE EVENT DATE: 2008
